FAERS Safety Report 6523650-5 (Version None)
Quarter: 2009Q4

REPORT INFORMATION
  Report Type: 
  Country: None (occurrence: None)
  Receive Date: 20091231
  Receipt Date: 20091229
  Transmission Date: 20100525
  Serious: Yes (Death)
  Sender: FDA-Public Use
  Company Number: PHHY2009US59291

PATIENT
  Sex: Male

DRUGS (1)
  1. TASIGNA [Suspect]
     Dosage: 400 MG, BID
     Route: 048

REACTIONS (1)
  - RESPIRATORY FAILURE [None]
